FAERS Safety Report 11285744 (Version 2)
Quarter: 2015Q3

REPORT INFORMATION
  Report Type: Spontaneous
  Country: DE (occurrence: DE)
  Receive Date: 20150721
  Receipt Date: 20150731
  Transmission Date: 20151125
  Serious: Yes (Hospitalization, Other)
  Sender: FDA-Public Use
  Company Number: DE-SUN PHARMACEUTICAL INDUSTRIES LTD-2015RR-100254

PATIENT

DRUGS (1)
  1. VENLAFAXINE [Suspect]
     Active Substance: VENLAFAXINE HYDROCHLORIDE
     Indication: BORDERLINE PERSONALITY DISORDER
     Dosage: 150 MG, DAILY, 75 MG DURING PREGNANCY, IN TE LAST 2 WEEKS DOSE INCREASED TO 150 MG/D
     Route: 064
     Dates: start: 20140730, end: 20150427

REACTIONS (8)
  - Caesarean section [None]
  - Maternal drugs affecting foetus [None]
  - Drug withdrawal syndrome neonatal [Recovered/Resolved]
  - Tremor neonatal [None]
  - Reflexes abnormal [None]
  - Infantile vomiting [None]
  - Myoclonus [None]
  - Middle insomnia [None]
